FAERS Safety Report 23557590 (Version 5)
Quarter: 2024Q2

REPORT INFORMATION
  Report Type: Report from Study
  Country: NL (occurrence: NL)
  Receive Date: 20240223
  Receipt Date: 20240531
  Transmission Date: 20240715
  Serious: Yes (Hospitalization)
  Sender: FDA-Public Use
  Company Number: NL-AMGEN-NLDSL2024026336

PATIENT
  Age: 31 Year
  Sex: Female

DRUGS (6)
  1. NPLATE [Suspect]
     Active Substance: ROMIPLOSTIM
     Indication: Immune thrombocytopenia
     Dosage: 500 MICROGRAM, QWK
     Route: 058
  2. NPLATE [Suspect]
     Active Substance: ROMIPLOSTIM
     Dosage: 500 MICROGRAM, QWK
     Route: 058
  3. NPLATE [Suspect]
     Active Substance: ROMIPLOSTIM
     Dosage: 7 MICROGRAM
  4. NPLATE [Suspect]
     Active Substance: ROMIPLOSTIM
     Dosage: 8 MICROGRAM
  5. NPLATE [Suspect]
     Active Substance: ROMIPLOSTIM
     Dosage: 10 MICROGRAM
  6. NPLATE [Suspect]
     Active Substance: ROMIPLOSTIM
     Dosage: UNK
     Route: 065

REACTIONS (2)
  - Platelet count abnormal [Not Recovered/Not Resolved]
  - Pneumonia influenzal [Recovering/Resolving]

NARRATIVE: CASE EVENT DATE: 20240201
